FAERS Safety Report 13505744 (Version 1)
Quarter: 2017Q2

REPORT INFORMATION
  Report Type: Spontaneous
  Country: US (occurrence: US)
  Receive Date: 20170502
  Receipt Date: 20170502
  Transmission Date: 20170830
  Serious: No
  Sender: FDA-Public Use
  Company Number: US-ASTRAZENECA-2016SE29861

PATIENT
  Sex: Male
  Weight: 93 kg

DRUGS (3)
  1. LEVOTHYROXINE. [Concomitant]
     Active Substance: LEVOTHYROXINE
     Indication: THYROID DISORDER
     Route: 048
  2. BYDUREON [Suspect]
     Active Substance: EXENATIDE
     Indication: DIABETES MELLITUS
     Route: 058
  3. INSULIN [Concomitant]
     Active Substance: INSULIN NOS
     Dosage: UNKNOWN
     Route: 065

REACTIONS (1)
  - Injection site mass [Not Recovered/Not Resolved]
